FAERS Safety Report 25968980 (Version 1)
Quarter: 2025Q4

REPORT INFORMATION
  Report Type: Report from Study
  Country: CA (occurrence: CA)
  Receive Date: 20251028
  Receipt Date: 20251028
  Transmission Date: 20260119
  Serious: Yes (Other)
  Sender: ALEXION PHARMACEUTICALS
  Company Number: CA-AstraZeneca-2023A274276

PATIENT
  Age: 47 Year
  Sex: Male

DRUGS (4)
  1. BENRALIZUMAB [Suspect]
     Active Substance: BENRALIZUMAB
     Indication: Asthma
     Dosage: 30 MILLIGRAM
  2. BENRALIZUMAB [Suspect]
     Active Substance: BENRALIZUMAB
  3. VENTOLIN [Concomitant]
     Active Substance: ALBUTEROL SULFATE
  4. BREO ELLIPTA [Concomitant]
     Active Substance: FLUTICASONE FUROATE\VILANTEROL TRIFENATATE

REACTIONS (11)
  - Drug hypersensitivity [Unknown]
  - Urticaria [Unknown]
  - Mass [Unknown]
  - Pruritus [Unknown]
  - Pustule [Unknown]
  - Hypersensitivity [Unknown]
  - Angle closure glaucoma [Unknown]
  - Deafness unilateral [Unknown]
  - Upper respiratory tract infection [Unknown]
  - Asthma [Unknown]
  - Drug ineffective [Unknown]
